FAERS Safety Report 8419708-6 (Version None)
Quarter: 2012Q2

REPORT INFORMATION
  Report Type: 
  Country: None (occurrence: None)
  Receive Date: 20120607
  Receipt Date: 20120529
  Transmission Date: 20120825
  Serious: Yes (Hospitalization)
  Sender: FDA-Public Use
  Company Number: US-ACTELION-A-NJ2011-58679

PATIENT

DRUGS (8)
  1. TRACLEER [Suspect]
     Indication: PULMONARY ARTERIAL HYPERTENSION
     Dosage: 125 MG, BID
     Route: 048
     Dates: start: 20030715
  2. COUMADIN [Concomitant]
  3. LANOXIN [Concomitant]
  4. RESTASIS [Concomitant]
  5. CALCIUM CHANNEL BLOCKERS [Concomitant]
  6. REVATIO [Concomitant]
  7. DIGOXIN [Concomitant]
  8. VIAGRA [Concomitant]

REACTIONS (6)
  - HIP FRACTURE [None]
  - ACUTE ABDOMEN [None]
  - OPEN REDUCTION OF FRACTURE [None]
  - FALL [None]
  - DECUBITUS ULCER [None]
  - PANCREATITIS [None]
